FAERS Safety Report 13298302 (Version 1)
Quarter: 2017Q1

REPORT INFORMATION
  Report Type: Spontaneous
  Country: US (occurrence: US)
  Receive Date: 20170306
  Receipt Date: 20170306
  Transmission Date: 20170428
  Serious: Yes (Other)
  Sender: FDA-Public Use
  Company Number: None

PATIENT
  Age: 23 Year
  Sex: Male
  Weight: 10.69 kg

DRUGS (1)
  1. TAMIFLU [Suspect]
     Active Substance: OSELTAMIVIR PHOSPHATE
     Indication: INFLUENZA
     Dosage: 5 ML (30MG)
     Route: 048
     Dates: start: 20170216, end: 20170220

REACTIONS (6)
  - Initial insomnia [None]
  - Screaming [None]
  - Insomnia [None]
  - Feeling abnormal [None]
  - Aggression [None]
  - Confusional state [None]

NARRATIVE: CASE EVENT DATE: 20170216
